FAERS Safety Report 5420433-4 (Version None)
Quarter: 2007Q3

REPORT INFORMATION
  Report Type: 
  Country: None (occurrence: None)
  Receive Date: 20070816
  Receipt Date: 20070803
  Transmission Date: 20080115
  Serious: Yes (Other)
  Sender: FDA-Public Use
  Company Number: MC200700538

PATIENT
  Sex: Female

DRUGS (1)
  1. ANGIOMAX, ANGIOX(BIVALIRUDIN) INJECTION [Suspect]
     Indication: PERCUTANEOUS CORONARY INTERVENTION
     Dosage: 1.75 MG/KG, HR, INTRAVENOUS
     Route: 042
     Dates: start: 20070803

REACTIONS (2)
  - CORONARY ARTERY DISSECTION [None]
  - PROCEDURAL COMPLICATION [None]
